FAERS Safety Report 4805859-1 (Version None)
Quarter: 2005Q4

REPORT INFORMATION
  Report Type: 
  Country: None (occurrence: None)
  Receive Date: 20051018
  Receipt Date: 20050222
  Transmission Date: 20060501
  Serious: Yes (Other)
  Sender: FDA-Public Use
  Company Number: CC05-003

PATIENT
  Sex: Female

DRUGS (1)
  1. ALBUTEROL [Suspect]
     Dosage: INHALATION; CHRONIC
     Route: 055

REACTIONS (1)
  - ASTHMA [None]
